FAERS Safety Report 8174784-3 (Version None)
Quarter: 2012Q1

REPORT INFORMATION
  Report Type: 
  Country: None (occurrence: None)
  Receive Date: 20120229
  Receipt Date: 20120222
  Transmission Date: 20120608
  Serious: Yes (Hospitalization)
  Sender: FDA-Public Use
  Company Number: FR-PFIZER INC-2012046283

PATIENT
  Age: 68 Year
  Sex: Male

DRUGS (3)
  1. ATGAM [Suspect]
     Dosage: UNK
     Route: 042
     Dates: start: 20111129, end: 20111129
  2. TAMSULOSIN [Concomitant]
     Route: 048
  3. PRAVASTATIN SODIUM [Concomitant]
     Indication: DYSLIPIDAEMIA
     Dosage: UNK
     Route: 048

REACTIONS (4)
  - SERUM SICKNESS [None]
  - RENAL FAILURE ACUTE [None]
  - PYREXIA [None]
  - CYTOLYTIC HEPATITIS [None]
